FAERS Safety Report 8156231-0 (Version None)
Quarter: 2012Q1

REPORT INFORMATION
  Report Type: 
  Country: None (occurrence: None)
  Receive Date: 20120222
  Receipt Date: 20120217
  Transmission Date: 20120608
  Serious: Yes (Other)
  Sender: FDA-Public Use
  Company Number: MX-PFIZER INC-2012043529

PATIENT
  Age: 12 Year
  Sex: Male

DRUGS (3)
  1. ZINC [Concomitant]
     Dosage: 50 MG, 1X/DAY
  2. GENOTROPIN [Suspect]
     Indication: OFF LABEL USE
     Dosage: 0.4 MG/KG, WEEKLY
     Route: 058
     Dates: start: 20100101
  3. LEVOTHYROXINE SODIUM [Concomitant]
     Indication: HYPOTHYROIDISM
     Dosage: 75 UG, 1X/DAY

REACTIONS (1)
  - NEPHROLITHIASIS [None]
